FAERS Safety Report 9049892 (Version 1)
Quarter: 2013Q1

REPORT INFORMATION
  Report Type: Spontaneous
  Country: CA (occurrence: CA)
  Receive Date: 20130205
  Receipt Date: 20130205
  Transmission Date: 20140127
  Serious: Yes (Hospitalization)
  Sender: FDA-Public Use
  Company Number: CA-B.I. PHARMACEUTICALS,INC./RIDGEFIELD-2012-BI-01587BP

PATIENT
  Sex: Male

DRUGS (2)
  1. MIRAPEX [Suspect]
     Indication: PARKINSON^S DISEASE
     Dosage: 0.375 MG
     Dates: start: 20050513, end: 2011
  2. AMANTADINE [Suspect]
     Indication: PARKINSON^S DISEASE
     Dosage: 200 MG
     Dates: start: 20100617, end: 20110315

REACTIONS (2)
  - Delusion [Recovered/Resolved]
  - Dyspepsia [Unknown]
